FAERS Safety Report 9870318 (Version 1)
Quarter: 2014Q1

REPORT INFORMATION
  Report Type: Spontaneous
  Country: US (occurrence: None)
  Receive Date: 20140203
  Receipt Date: 20140203
  Transmission Date: 20141002
  Serious: Yes (Death)
  Sender: FDA-Public Use
  Company Number: VAL_02925_2014

PATIENT
  Age: 35 Year
  Sex: Male

DRUGS (3)
  1. CARBAMAZEPINE [Suspect]
     Indication: PRODUCT USED FOR UNKNOWN INDICATION
  2. GASOLINE [Suspect]
  3. ETHANOL [Suspect]

REACTIONS (5)
  - Poisoning [None]
  - Aspiration [None]
  - Respiratory arrest [None]
  - Cardiac arrest [None]
  - Exposure via ingestion [None]
